FAERS Safety Report 6028120-9 (Version None)
Quarter: 2009Q1

REPORT INFORMATION
  Report Type: 
  Country: None (occurrence: None)
  Receive Date: 20090105
  Receipt Date: 20090105
  Transmission Date: 20090719
  Serious: Yes (Other)
  Sender: FDA-Public Use
  Company Number: None

PATIENT
  Sex: Female
  Weight: 74.8435 kg

DRUGS (4)
  1. ACTONEL [Suspect]
     Indication: BONE SCAN
     Dosage: 1 TAB 150MG 1 MONTHLY ORAL
     Route: 048
     Dates: start: 20081206
  2. ACTONEL [Suspect]
     Indication: BONE SCAN
     Dosage: 1 TAB 150MG 1 MONTHLY ORAL
     Route: 048
     Dates: start: 20081207
  3. ACTONEL [Suspect]
     Indication: BONE SCAN
     Dosage: 1 TAB 150MG 1 MONTHLY ORAL
     Route: 048
     Dates: start: 20081208
  4. ACTONEL [Suspect]
     Indication: BONE SCAN
     Dosage: 1 TAB 150MG 1 MONTHLY ORAL
     Route: 048
     Dates: start: 20081209

REACTIONS (5)
  - ABDOMINAL DISCOMFORT [None]
  - ANOREXIA [None]
  - LETHARGY [None]
  - URTICARIA [None]
  - VOMITING [None]
